FAERS Safety Report 4915530-3 (Version None)
Quarter: 2006Q1

REPORT INFORMATION
  Report Type: 
  Country: None (occurrence: None)
  Receive Date: 20060217
  Receipt Date: 20050614
  Transmission Date: 20060701
  Serious: Yes (Hospitalization, Disabling)
  Sender: FDA-Public Use
  Company Number: US-MERCK-0506USA02179

PATIENT
  Age: 54 Year
  Sex: Male
  Weight: 76 kg

DRUGS (2)
  1. VIOXX [Suspect]
     Indication: ARTHRALGIA
     Route: 048
     Dates: start: 19990501, end: 20041001
  2. TYLENOL [Concomitant]
     Route: 065

REACTIONS (6)
  - ANGINA PECTORIS [None]
  - CARDIAC DISORDER [None]
  - DEPRESSION [None]
  - INCISION SITE COMPLICATION [None]
  - MUSCLE SPASMS [None]
  - MYOCARDIAL INFARCTION [None]
